FAERS Safety Report 16278515 (Version 4)
Quarter: 2019Q4

REPORT INFORMATION
  Report Type: Report from Study
  Country: US (occurrence: US)
  Receive Date: 20190506
  Receipt Date: 20191121
  Transmission Date: 20200122
  Serious: Yes (Hospitalization)
  Sender: FDA-Public Use
  Company Number: US-ACTELION-A-NJ2019-187302

PATIENT
  Age: 62 Year
  Sex: Female

DRUGS (13)
  1. OSPHENA [Concomitant]
     Active Substance: OSPEMIFENE
  2. CEFDINIR. [Concomitant]
     Active Substance: CEFDINIR
  3. LEVOTHYROXINE. [Concomitant]
     Active Substance: LEVOTHYROXINE
     Dosage: 25 MCG, QD
  4. NIFEDIPINE. [Concomitant]
     Active Substance: NIFEDIPINE
  5. HYDRALAZINE [Concomitant]
     Active Substance: HYDRALAZINE HYDROCHLORIDE
     Dosage: 20 MG, QD
  6. SILDENAFIL. [Concomitant]
     Active Substance: SILDENAFIL
     Dosage: 20 MG, TID
  7. DEXILANT [Concomitant]
     Active Substance: DEXLANSOPRAZOLE
  8. PRASTERONE [Concomitant]
     Active Substance: PRASTERONE
  9. MUPIROCIN. [Concomitant]
     Active Substance: MUPIROCIN
  10. POTASSIUM CHLORIDE. [Concomitant]
     Active Substance: POTASSIUM CHLORIDE
     Dosage: 10 MEQ, QD
  11. OPSUMIT [Suspect]
     Active Substance: MACITENTAN
     Indication: PULMONARY ARTERIAL HYPERTENSION
     Dosage: 10 MG, QD
     Route: 048
     Dates: start: 20190131
  12. FUROSEMIDE. [Concomitant]
     Active Substance: FUROSEMIDE
  13. VENLAFAXINE [Concomitant]
     Active Substance: VENLAFAXINE HYDROCHLORIDE

REACTIONS (4)
  - Transient ischaemic attack [Unknown]
  - Memory impairment [Unknown]
  - Cerebrovascular accident [Unknown]
  - Product dose omission [Unknown]

NARRATIVE: CASE EVENT DATE: 20190227
